FAERS Safety Report 8285621 (Version 9)
Quarter: 2013Q3

REPORT INFORMATION
  Report Type: Spontaneous
  Country: US (occurrence: None)
  Receive Date: 20111206
  Receipt Date: 20130830
  Transmission Date: 20140515
  Serious: Yes (Other)
  Sender: FDA-Public Use
  Company Number: US-2011-10857

PATIENT
  Age: 43 Year
  Sex: Female
  Weight: 101.6 kg

DRUGS (9)
  1. TOLVAPTAN [Suspect]
     Indication: CONGENITAL RENAL DISORDER
     Dosage: 90 MG MILLIGRAM(S), DAILY DOSE, ORAL
     Route: 048
     Dates: start: 20110810, end: 20111121
  2. DIOVAN [Concomitant]
  3. VERELAN [Concomitant]
  4. MULTI-VITAMIN [Concomitant]
  5. FLAXSEED OIL (FLAXSEED OIL) [Concomitant]
  6. OSTEO-BIOFLEX [Concomitant]
  7. ZETIA (EZETIMIBE) [Concomitant]
  8. TUMS (CALCIUM CARBONATE, MAGNESIUM CARBONATE, MAGNESIUM TRISILICATE) [Concomitant]
  9. VITAMIN D (COLECALCIFEROL) [Concomitant]

REACTIONS (11)
  - Alanine aminotransferase increased [None]
  - Aspartate aminotransferase increased [None]
  - Abdominal distension [None]
  - Decreased appetite [None]
  - Pruritus generalised [None]
  - Blood bilirubin increased [None]
  - Umbilical hernia [None]
  - Hepatotoxicity [None]
  - Liver disorder [None]
  - Gallbladder oedema [None]
  - Cholecystitis [None]
